FAERS Safety Report 25754691 (Version 1)
Quarter: 2025Q3

REPORT INFORMATION
  Report Type: Spontaneous
  Country: CN (occurrence: CN)
  Receive Date: 20250903
  Receipt Date: 20250903
  Transmission Date: 20251020
  Serious: Yes (Life-Threatening, Other)
  Sender: ROCHE
  Company Number: CN-ROCHE-10000378091

PATIENT
  Age: 15 Year
  Sex: Male

DRUGS (4)
  1. GAZYVA [Suspect]
     Active Substance: OBINUTUZUMAB
     Indication: Nephrotic syndrome
     Route: 042
     Dates: start: 20250812, end: 20250812
  2. DEXIBUPROFEN [Concomitant]
     Active Substance: DEXIBUPROFEN
     Route: 048
  3. DEXAMETHASONE [Concomitant]
     Active Substance: DEXAMETHASONE
  4. PROMETHAZINE [Concomitant]
     Active Substance: PROMETHAZINE HYDROCHLORIDE

REACTIONS (9)
  - Hypotension [Recovered/Resolved]
  - Headache [Recovered/Resolved]
  - Cardiovascular disorder [Recovered/Resolved]
  - Peripheral coldness [Recovered/Resolved]
  - Oropharyngeal discomfort [Recovered/Resolved]
  - Dizziness [Recovered/Resolved]
  - Pallor [Recovered/Resolved]
  - Respiratory rate increased [Recovered/Resolved]
  - Off label use [Unknown]

NARRATIVE: CASE EVENT DATE: 20250812
